FAERS Safety Report 6289124-4 (Version None)
Quarter: 2009Q3

REPORT INFORMATION
  Report Type: 
  Country: None (occurrence: None)
  Receive Date: 20090729
  Receipt Date: 20090723
  Transmission Date: 20100115
  Serious: Yes (Death, Life-Threatening, Hospitalization)
  Sender: FDA-Public Use
  Company Number: FR-ASTRAZENECA-2009SE05588

PATIENT
  Age: 17 Year
  Sex: Female

DRUGS (20)
  1. DIPRIVAN [Suspect]
     Indication: SEDATION
     Route: 042
     Dates: start: 20081218
  2. PANTOPRAZOLE SODIUM [Suspect]
     Indication: PROPHYLAXIS AGAINST GASTROINTESTINAL ULCER
     Route: 042
     Dates: start: 20081201
  3. GARDENAL [Suspect]
     Indication: EPILEPSY
     Route: 042
     Dates: start: 20081201
  4. TAZOCILLIN [Suspect]
     Indication: ESCHERICHIA INFECTION
     Route: 042
     Dates: start: 20081225
  5. VANCOMYCIN [Suspect]
     Indication: ANTIMICROBIAL SUSCEPTIBILITY TEST RESISTANT
     Route: 042
     Dates: start: 20081201
  6. PENTHOTAL [Suspect]
     Indication: SEDATION
     Route: 042
     Dates: start: 20081208
  7. DEPAKENE [Suspect]
     Indication: EPILEPSY
     Route: 042
     Dates: start: 20081226
  8. KEPPRA [Suspect]
     Indication: EPILEPSY
     Route: 042
     Dates: start: 20081206
  9. AMIKLIN [Suspect]
     Indication: ESCHERICHIA INFECTION
     Route: 042
     Dates: start: 20081225
  10. URBANYL [Suspect]
     Indication: EPILEPSY
     Route: 042
     Dates: start: 20081215
  11. ENDOXAN [Suspect]
     Indication: SJOGREN'S SYNDROME
     Dosage: 750 MG/CYCLE
     Route: 042
     Dates: start: 20081211
  12. FOSPHENYTOIN SODIUM [Suspect]
     Indication: EPILEPSY
     Route: 042
     Dates: start: 20081209
  13. SUFENTA PRESERVATIVE FREE [Suspect]
     Indication: SEDATION
     Route: 042
     Dates: start: 20081129, end: 20081225
  14. MIDAZOLAM HCL [Concomitant]
     Dates: start: 20081128, end: 20081209
  15. DUPHALAC [Concomitant]
  16. SOLU-MEDROL [Concomitant]
  17. NEUPOGEN [Concomitant]
     Dates: start: 20081201
  18. ACETAMINOPHEN [Concomitant]
  19. NEOSTIGMINE [Concomitant]
  20. NORADRENALIN [Concomitant]

REACTIONS (2)
  - AGRANULOCYTOSIS [None]
  - SEPTIC SHOCK [None]
